FAERS Safety Report 6376542-9 (Version None)
Quarter: 2009Q3

REPORT INFORMATION
  Report Type: 
  Country: None (occurrence: None)
  Receive Date: 20090922
  Receipt Date: 20090922
  Transmission Date: 20100115
  Serious: Yes (Death)
  Sender: FDA-Public Use
  Company Number: None

PATIENT
  Sex: Male

DRUGS (2)
  1. RISPERIDONE [Suspect]
     Indication: SCHIZOPHRENIA, PARANOID TYPE
     Dosage: 6MG AND 3MG Q AM AND Q HS PO
     Route: 048
     Dates: start: 20081118, end: 20090509
  2. AMBIEN CR [Suspect]
     Indication: SCHIZOPHRENIA, PARANOID TYPE
     Dosage: 12.5 MG AT BEDTIME PO
     Route: 048
     Dates: start: 20081118, end: 20090509

REACTIONS (2)
  - ACCIDENTAL DEATH [None]
  - ASPHYXIA [None]
